FAERS Safety Report 7817750-7 (Version None)
Quarter: 2011Q4

REPORT INFORMATION
  Report Type: 
  Country: None (occurrence: None)
  Receive Date: 20111017
  Receipt Date: 20111006
  Transmission Date: 20120403
  Serious: Yes (Hospitalization)
  Sender: FDA-Public Use
  Company Number: JP-JNJFOC-20100308706

PATIENT
  Sex: Male
  Weight: 52 kg

DRUGS (15)
  1. FERROUS CITRATE [Concomitant]
     Indication: ANAEMIA
     Route: 048
  2. REMICADE [Suspect]
     Route: 042
     Dates: start: 20100201
  3. LENDORMIN D [Concomitant]
     Indication: INSOMNIA
     Route: 048
  4. IMURAN [Suspect]
     Indication: CROHN'S DISEASE
     Route: 048
     Dates: start: 20030301, end: 20050701
  5. REMICADE [Suspect]
     Route: 042
     Dates: start: 20050701
  6. REMICADE [Suspect]
     Dosage: 60TH INFUSION
     Route: 042
     Dates: start: 20100303
  7. LOPERAMIDE HCL [Concomitant]
     Indication: CROHN'S DISEASE
     Dosage: 3 CAP PER DAY
     Route: 048
  8. HALCION [Concomitant]
     Indication: INSOMNIA
     Route: 048
  9. PHELLOBERIN [Concomitant]
     Indication: CROHN'S DISEASE
     Dosage: ^6 TAB^
     Route: 048
  10. MIYA BM [Concomitant]
     Indication: CROHN'S DISEASE
     Route: 048
  11. REMICADE [Suspect]
     Indication: CROHN'S DISEASE
     Route: 042
     Dates: start: 20080601
  12. REMICADE [Suspect]
     Route: 042
     Dates: start: 20030401
  13. IMURAN [Suspect]
     Route: 048
     Dates: start: 20050701
  14. NIZATIDINE [Concomitant]
     Indication: GASTRITIS EROSIVE
     Route: 048
  15. SULFASALAZINE [Concomitant]
     Indication: CROHN'S DISEASE
     Dosage: ROUTE: ^PR^
     Route: 054

REACTIONS (3)
  - DRUG INEFFECTIVE [None]
  - ACUTE MYELOMONOCYTIC LEUKAEMIA [None]
  - GINGIVITIS [None]
